FAERS Safety Report 10201242 (Version 1)
Quarter: 2014Q2

REPORT INFORMATION
  Report Type: Spontaneous
  Country: US (occurrence: US)
  Receive Date: 20140528
  Receipt Date: 20140528
  Transmission Date: 20141212
  Serious: No
  Sender: FDA-Public Use
  Company Number: US-TEVA-483946USA

PATIENT
  Age: 70 Year
  Sex: Male
  Weight: 83.99 kg

DRUGS (11)
  1. AZILECT [Suspect]
     Indication: PARKINSON^S DISEASE
     Dates: start: 201311
  2. NAMENDA [Concomitant]
     Indication: PARKINSON^S DISEASE
  3. ARICEPT [Concomitant]
     Indication: PARKINSON^S DISEASE
  4. CARBIDOPA/LEVADOPA [Concomitant]
     Indication: PARKINSON^S DISEASE
  5. BENAZEPRIL [Concomitant]
     Indication: HYPERTENSION
  6. ATENOLOL [Concomitant]
     Indication: HYPERTENSION
  7. ISOSORBIDE MONONITRATE [Concomitant]
  8. SIMVASTATIN [Concomitant]
     Indication: HYPERCHOLESTEROLAEMIA
  9. NOVOLIN N [Concomitant]
     Indication: DIABETES MELLITUS
  10. ASPIRIN [Concomitant]
     Indication: PRODUCT USED FOR UNKNOWN INDICATION
  11. MIRAPEX [Concomitant]
     Indication: PARKINSON^S DISEASE

REACTIONS (6)
  - Arthralgia [Unknown]
  - Muscle tightness [Unknown]
  - Muscle twitching [Unknown]
  - Anxiety [Unknown]
  - Dyskinesia [Unknown]
  - Malaise [Unknown]
